FAERS Safety Report 5706286-5 (Version None)
Quarter: 2008Q2

REPORT INFORMATION
  Report Type: 
  Country: None (occurrence: None)
  Receive Date: 20080409
  Receipt Date: 20080219
  Transmission Date: 20081010
  Serious: Yes (Hospitalization)
  Sender: FDA-Public Use
  Company Number: T200800247

PATIENT
  Age: 54 Year
  Sex: Female

DRUGS (4)
  1. RESTORIL [Suspect]
     Dosage: TOOK 25 CAPSULES, ORAL
     Route: 048
     Dates: start: 20080201, end: 20080201
  2. ALCOHOL [Suspect]
     Dosage: DRANK 6 BEERS ALONG WITH 25 CAPSULES OF RESTORIL, ORAL
     Route: 048
     Dates: start: 20080201, end: 20080201
  3. PEGASYS /01557901/(PEGINTERFERON ALFA-2A) [Concomitant]
  4. RIBAVIRIN [Concomitant]

REACTIONS (1)
  - INTENTIONAL OVERDOSE [None]
